FAERS Safety Report 24466307 (Version 1)
Quarter: 2024Q4

REPORT INFORMATION
  Report Type: Report from Study
  Country: US (occurrence: US)
  Receive Date: 20241018
  Receipt Date: 20241018
  Transmission Date: 20250115
  Serious: No
  Sender: ROCHE
  Company Number: US-ROCHE-3538913

PATIENT
  Age: 56 Year
  Sex: Female

DRUGS (13)
  1. XOLAIR [Suspect]
     Active Substance: OMALIZUMAB
     Indication: Asthmatic crisis
     Route: 058
     Dates: start: 20240329
  2. XOLAIR [Suspect]
     Active Substance: OMALIZUMAB
  3. ZOVIRAX [Concomitant]
     Active Substance: ACYCLOVIR
  4. VENTOLIN [Concomitant]
     Active Substance: ALBUTEROL SULFATE
  5. PROVENTIL HFA [Concomitant]
     Active Substance: ALBUTEROL SULFATE
  6. NORVASC [Concomitant]
     Active Substance: AMLODIPINE BESYLATE
  7. ZYRTEC [Concomitant]
     Active Substance: CETIRIZINE HYDROCHLORIDE
  8. OPTICROM [Concomitant]
     Active Substance: CROMOLYN SODIUM
  9. BENADRYL [Concomitant]
     Active Substance: DIPHENHYDRAMINE HYDROCHLORIDE
  10. EPIPEN [Concomitant]
     Active Substance: EPINEPHRINE
  11. NEURONTIN [Concomitant]
     Active Substance: GABAPENTIN
  12. DELTASONE [Concomitant]
     Active Substance: PREDNISONE
  13. METFORMIN [Concomitant]
     Active Substance: METFORMIN HYDROCHLORIDE

REACTIONS (8)
  - Abdominal pain lower [Unknown]
  - Abdominal pain upper [Unknown]
  - Headache [Unknown]
  - Polyneuropathy [Unknown]
  - Hypertension [Unknown]
  - Barrett^s oesophagus [Unknown]
  - Diabetes mellitus [Unknown]
  - Hyperlipidaemia [Unknown]
